FAERS Safety Report 18566029 (Version 2)
Quarter: 2020Q4

REPORT INFORMATION
  Report Type: Spontaneous
  Country: US (occurrence: US)
  Receive Date: 20201201
  Receipt Date: 20201223
  Transmission Date: 20210114
  Serious: Yes (Hospitalization, Other)
  Sender: FDA-Public Use
  Company Number: US-TEVA-2020-US-1853626

PATIENT
  Age: 86 Year
  Sex: Male

DRUGS (12)
  1. ALBUTEROL. [Suspect]
     Active Substance: ALBUTEROL
     Indication: DYSPNOEA
     Dosage: NEBULISERS
     Route: 055
  2. LEVALBUTEROL. [Suspect]
     Active Substance: LEVALBUTEROL
     Indication: DYSPNOEA
     Dosage: NEBULISER SOLUTION
     Route: 055
  3. MORPHINE [Concomitant]
     Active Substance: MORPHINE
     Indication: DYSPNOEA
     Dosage: 20 MILLIGRAM DAILY; AS NEEDED
     Route: 048
  4. FENTANYL. [Suspect]
     Active Substance: FENTANYL
     Dosage: NEBULISED FENTANYL (25 MCG EVERY 3-4 HOURS WHILE AWAKE PRN)
     Route: 055
  5. MORPHINE [Concomitant]
     Active Substance: MORPHINE
     Dosage: 20 MILLIGRAM DAILY; AS NEEDED
     Route: 042
  6. SYMBICORT [Suspect]
     Active Substance: BUDESONIDE\FORMOTEROL FUMARATE DIHYDRATE
     Indication: DYSPNOEA
     Dosage: NEBULISERS
     Route: 055
  7. PRECEDEX [Suspect]
     Active Substance: DEXMEDETOMIDINE HYDROCHLORIDE
     Indication: DYSPNOEA
     Route: 065
  8. CLONAZEPAM. [Concomitant]
     Active Substance: CLONAZEPAM
     Indication: ANXIETY
     Dosage: .25 MILLIGRAM DAILY; TITRATED UP TO THE HIS MOST RECENT DOSE OF 0.5 MG DAILY
     Route: 048
  9. SODIUM CHLORIDE. [Suspect]
     Active Substance: SODIUM CHLORIDE
     Indication: DYSPNOEA
     Dosage: NEBULISER SOLUTION
     Route: 055
  10. MORPHINE [Concomitant]
     Active Substance: MORPHINE
     Indication: AGITATION
     Dosage: 1.2 ML DAILY; 100MG/5 ML CONCENTRATED SOLUTION, AS NEEDED
     Route: 048
  11. FENTANYL. [Suspect]
     Active Substance: FENTANYL
     Indication: DYSPNOEA
     Dosage: AS NEEDED
     Route: 042
  12. LORAZEPAM. [Concomitant]
     Active Substance: LORAZEPAM
     Indication: ANXIETY
     Route: 048

REACTIONS (3)
  - Treatment failure [Unknown]
  - Off label use [Unknown]
  - Hallucination [Unknown]
